FAERS Safety Report 24560810 (Version 1)
Quarter: 2024Q4

REPORT INFORMATION
  Report Type: Spontaneous
  Country: US (occurrence: US)
  Receive Date: 20241029
  Receipt Date: 20241029
  Transmission Date: 20250114
  Serious: Yes (Life-Threatening, Hospitalization)
  Sender: AMGEN
  Company Number: US-AMGEN-USASP2024211883

PATIENT
  Age: 36 Year
  Sex: Male

DRUGS (4)
  1. PREDNISONE [Suspect]
     Active Substance: PREDNISONE
     Indication: Sinusitis
     Dosage: 60 MILLIGRAM, QD (3 WEEKS)
     Route: 048
  2. PREDNISONE [Suspect]
     Active Substance: PREDNISONE
     Dosage: 40 MILLIGRAM, QD
     Route: 048
  3. AZITHROMYCIN [Concomitant]
     Active Substance: AZITHROMYCIN
     Indication: Sinusitis
     Dosage: UNK
     Route: 065
  4. DEXAMETHASONE [Concomitant]
     Active Substance: DEXAMETHASONE
     Indication: Sinusitis
     Dosage: 10 MILLIGRAM, BID
     Route: 048

REACTIONS (22)
  - Substance-induced psychotic disorder [Unknown]
  - Myopericarditis [Unknown]
  - Coronary artery disease [Unknown]
  - Acute myocardial infarction [Unknown]
  - Leukocytosis [Unknown]
  - Hyperferritinaemia [Unknown]
  - Normochromic anaemia [Unknown]
  - Epstein-Barr virus test positive [Unknown]
  - Lyme disease [Unknown]
  - Upper respiratory tract infection [Unknown]
  - Pneumonia [Unknown]
  - Liver function test abnormal [Unknown]
  - Still^s disease [Unknown]
  - Haemophagocytic lymphohistiocytosis [Unknown]
  - Haemoptysis [Unknown]
  - Neutrophilia [Unknown]
  - Lymphopenia [Unknown]
  - Thrombocytopenia [Unknown]
  - Anisocytosis [Unknown]
  - Antinuclear antibody positive [Unknown]
  - Back pain [Unknown]
  - Off label use [Unknown]
